FAERS Safety Report 7239514-8 (Version None)
Quarter: 2011Q1

REPORT INFORMATION
  Report Type: 
  Country: None (occurrence: None)
  Receive Date: 20110121
  Receipt Date: 20110113
  Transmission Date: 20110831
  Serious: No
  Sender: FDA-Public Use
  Company Number: US-B.I. PHARMACEUTICALS,INC./RIDGEFIELD-2011-BP-01223BP

PATIENT
  Sex: Female

DRUGS (3)
  1. LASIX [Concomitant]
     Indication: OEDEMA PERIPHERAL
     Route: 048
  2. DILTIAZEM [Concomitant]
     Indication: CARDIAC DISORDER
     Route: 048
  3. PRADAXA [Suspect]
     Indication: ATRIAL FIBRILLATION
     Dosage: 300 MG
     Route: 048
     Dates: start: 20110111

REACTIONS (2)
  - CONTUSION [None]
  - LIMB INJURY [None]
